FAERS Safety Report 17151479 (Version 1)
Quarter: 2019Q4

REPORT INFORMATION
  Report Type: Spontaneous
  Country: US (occurrence: US)
  Receive Date: 20191212
  Receipt Date: 20191212
  Transmission Date: 20200122
  Serious: Yes (Other)
  Sender: FDA-Public Use
  Company Number: None

PATIENT
  Sex: Male

DRUGS (1)
  1. ATORVASTATIN 20 MG [Suspect]
     Active Substance: ATORVASTATIN

REACTIONS (2)
  - Hypoaesthesia [None]
  - Muscle spasms [None]
